FAERS Safety Report 16935163 (Version 1)
Quarter: 2019Q4

REPORT INFORMATION
  Report Type: Spontaneous
  Country: US (occurrence: US)
  Receive Date: 20191018
  Receipt Date: 20191018
  Transmission Date: 20200122
  Serious: No
  Sender: FDA-Public Use
  Company Number: US-PFIZER INC-2019448706

PATIENT
  Age: 9 Year
  Sex: Female

DRUGS (1)
  1. GENOTROPIN MQ [Suspect]
     Active Substance: SOMATROPIN
     Indication: GROWTH RETARDATION
     Dosage: 1 MG, 1X/DAY (ONCE EVERY NIGHT)
     Route: 058
     Dates: start: 20190901

REACTIONS (6)
  - Arthralgia [Recovered/Resolved]
  - Pain [Unknown]
  - Product dose omission [Unknown]
  - Headache [Unknown]
  - Photophobia [Unknown]
  - Fatigue [Unknown]
